FAERS Safety Report 7119149-8 (Version None)
Quarter: 2010Q4

REPORT INFORMATION
  Report Type: 
  Country: None (occurrence: None)
  Receive Date: 20101123
  Receipt Date: 20100831
  Transmission Date: 20110411
  Serious: No
  Sender: FDA-Public Use
  Company Number: US-MYLANLABS-2010S1016279

PATIENT
  Age: 77 Year
  Sex: Female

DRUGS (8)
  1. AMLODIPINE BESYLATE [Suspect]
     Indication: BLOOD PRESSURE INCREASED
     Route: 048
     Dates: start: 20100503, end: 20100501
  2. ZETIA [Concomitant]
  3. LASIX [Concomitant]
  4. DOXYCYCLINE [Concomitant]
  5. EYE DROPS [Concomitant]
  6. TRAZODONE [Concomitant]
  7. PROPRANOLOL [Concomitant]
  8. NASACORT [Concomitant]

REACTIONS (5)
  - ARTHRALGIA [None]
  - ARTHRITIS [None]
  - JOINT SWELLING [None]
  - OEDEMA PERIPHERAL [None]
  - PAIN IN EXTREMITY [None]
